FAERS Safety Report 8820161 (Version 1)
Quarter: 2012Q4

REPORT INFORMATION
  Report Type: 
  Country: US (occurrence: US)
  Receive Date: 20121001
  Receipt Date: 20121001
  Transmission Date: 20130627
  Serious: Yes (Other)
  Sender: FDA-Public Use
  Company Number: US-PFIZER INC-2012237450

PATIENT
  Age: 50 Year
  Sex: Female
  Weight: 55.33 kg

DRUGS (10)
  1. CELEBREX [Suspect]
     Indication: RHEUMATOID ARTHRITIS
     Dosage: UNK (1 in 1 D)
     Dates: start: 20120606, end: 20120615
  2. HUMIRA [Suspect]
     Indication: RHEUMATOID ARTHRITIS
     Dosage: UNK (40 mg, 1 in 2 wk)
     Route: 058
     Dates: start: 201204, end: 201206
  3. METHOTREXATE SODIUM [Concomitant]
     Indication: RHEUMATOID ARTHRITIS
     Dosage: UNK
  4. SERTRALINE HYDROCHLORIDE [Concomitant]
     Indication: ANXIETY
     Dosage: UNK
  5. HYDROCODONE [Concomitant]
     Indication: PAIN
     Dosage: As required
  6. TYLENOL PM [Concomitant]
     Indication: INSOMNIA
     Dosage: UNK
  7. FOLIC ACID [Concomitant]
     Indication: PROPHYLAXIS
     Dosage: UNK
  8. NEXIUM [Concomitant]
     Indication: ULCER
     Dosage: UNK
  9. IBUPROFEN [Concomitant]
     Indication: INFLAMMATION
     Dosage: As required
  10. IBUPROFEN [Concomitant]
     Indication: PAIN

REACTIONS (3)
  - Drug eruption [Recovered/Resolved]
  - Rash [Recovered/Resolved]
  - Eye pain [Recovered/Resolved]
